FAERS Safety Report 23958741 (Version 3)
Quarter: 2024Q2

REPORT INFORMATION
  Report Type: Spontaneous
  Country: ES (occurrence: ES)
  Receive Date: 20240610
  Receipt Date: 20240619
  Transmission Date: 20240716
  Serious: Yes (Death, Hospitalization, Other)
  Sender: FDA-Public Use
  Company Number: ES-PFIZER INC-202400185297

PATIENT
  Age: 43 Year
  Sex: Male

DRUGS (1)
  1. AVIBACTAM SODIUM [Suspect]
     Active Substance: AVIBACTAM SODIUM
     Indication: Pneumonia klebsiella
     Route: 065
     Dates: start: 202302

REACTIONS (1)
  - Drug resistance [Fatal]

NARRATIVE: CASE EVENT DATE: 20230201
